FAERS Safety Report 24055516 (Version 1)
Quarter: 2024Q3

REPORT INFORMATION
  Report Type: Report from Study
  Country: US (occurrence: US)
  Receive Date: 20240705
  Receipt Date: 20240705
  Transmission Date: 20241016
  Serious: Yes (Other)
  Sender: TEVA
  Company Number: US-TEVA-VS-3215792

PATIENT
  Age: 65 Year
  Sex: Female

DRUGS (10)
  1. AUSTEDO [Suspect]
     Active Substance: DEUTETRABENAZINE
     Indication: Osteoarthritis
     Dosage: TAKE TABLET BY MOUTH AT BEDTIME
     Route: 048
  2. AUSTEDO [Suspect]
     Active Substance: DEUTETRABENAZINE
     Indication: Osteoarthritis
     Dosage: TAKE TABLET BY MOUTH AT BEDTIME
     Route: 048
  3. PANTOPRAZOLE [Concomitant]
     Active Substance: PANTOPRAZOLE
  4. LEVOTHYROXINE [Concomitant]
     Active Substance: LEVOTHYROXINE\LEVOTHYROXINE SODIUM
  5. PROPRANOLOL [Concomitant]
     Active Substance: PROPRANOLOL HYDROCHLORIDE
  6. QUETIAPINE FUMARATE [Concomitant]
     Active Substance: QUETIAPINE FUMARATE
  7. TRINTELLIX [Concomitant]
     Active Substance: VORTIOXETINE HYDROBROMIDE
  8. VITAMIN D [Concomitant]
     Active Substance: VITAMIN D NOS
  9. Zolpidem TAR [Concomitant]
  10. CLONAZEPAM [Concomitant]
     Active Substance: CLONAZEPAM
     Dosage: TBD

REACTIONS (7)
  - Cardiac flutter [Not Recovered/Not Resolved]
  - Somnolence [Not Recovered/Not Resolved]
  - Bruxism [Not Recovered/Not Resolved]
  - Pain in extremity [Not Recovered/Not Resolved]
  - Loss of personal independence in daily activities [Not Recovered/Not Resolved]
  - Off label use [Unknown]
  - Product use in unapproved indication [Unknown]

NARRATIVE: CASE EVENT DATE: 20240101
